FAERS Safety Report 22306427 (Version 2)
Quarter: 2023Q2

REPORT INFORMATION
  Report Type: Spontaneous
  Country: CA (occurrence: CA)
  Receive Date: 20230511
  Receipt Date: 20230601
  Transmission Date: 20230721
  Serious: Yes (Hospitalization, Other)
  Sender: FDA-Public Use
  Company Number: CA-CELLTRION INC.-2023CA009713

PATIENT

DRUGS (5)
  1. INFLECTRA [Suspect]
     Active Substance: INFLIXIMAB-DYYB
     Indication: Crohn^s disease
     Dosage: 300 MG, INDUCTION AT  Q 0,2,6 THEN EVERY 8 WEEKS
     Route: 042
     Dates: start: 20230320
  2. INFLECTRA [Suspect]
     Active Substance: INFLIXIMAB-DYYB
     Dosage: UNK
     Route: 042
  3. VITAMIN B12 [Concomitant]
     Active Substance: CYANOCOBALAMIN
     Dosage: 1 DF ,UNKNOWN DOSE
     Route: 065
  4. PREDNISONE [Concomitant]
     Active Substance: PREDNISONE
     Dosage: 35 MG
     Route: 065
  5. VIT D [VITAMIN D NOS] [Concomitant]
     Dosage: 5000 IU
     Route: 065

REACTIONS (2)
  - Stoma obstruction [Recovered/Resolved]
  - Stoma closure [Unknown]

NARRATIVE: CASE EVENT DATE: 20230428
